FAERS Safety Report 9654453 (Version 3)
Quarter: 2014Q1

REPORT INFORMATION
  Report Type: Spontaneous
  Country: US (occurrence: US)
  Receive Date: 20131029
  Receipt Date: 20140120
  Transmission Date: 20141002
  Serious: Yes (Other)
  Sender: FDA-Public Use
  Company Number: CHPA2012US026210

PATIENT
  Sex: Male

DRUGS (4)
  1. EXCEDRIN TENSION HEADACHE [Suspect]
     Indication: MIGRAINE
     Dosage: 2-3 DF, PRN
     Route: 048
     Dates: start: 201003, end: 201112
  2. EXCEDRIN EXTRA STRENGTH [Suspect]
     Indication: PAIN
     Dosage: 2-3 DF, PRN
     Route: 048
     Dates: start: 1960, end: 20100131
  3. EXCEDRIN MIGRAINE [Suspect]
     Dosage: UNK DF, UNK
  4. BUTALBIT/APAP/CAFFEINE PLUS [Concomitant]

REACTIONS (4)
  - Cerebrovascular accident [Unknown]
  - Headache [Unknown]
  - Pain [Unknown]
  - Incorrect dose administered [Unknown]
